FAERS Safety Report 18320843 (Version 1)
Quarter: 2020Q3

REPORT INFORMATION
  Report Type: Report from Study
  Country: US (occurrence: US)
  Receive Date: 20200928
  Receipt Date: 20200928
  Transmission Date: 20201103
  Serious: Yes (Death, Hospitalization, Other)
  Sender: FDA-Public Use
  Company Number: US-JNJFOC-A-NJ2020-207014

PATIENT
  Age: 59 Year
  Sex: Female

DRUGS (21)
  1. AMIODARONE [Concomitant]
     Active Substance: AMIODARONE
  2. PANTOPRAZOLE [Concomitant]
     Active Substance: PANTOPRAZOLE
  3. POTASSIUM CHLORIDE. [Concomitant]
     Active Substance: POTASSIUM CHLORIDE
  4. GARLIC                             /01570501/ [Concomitant]
     Active Substance: GARLIC
  5. MUCINEX D [Concomitant]
     Active Substance: GUAIFENESIN\PSEUDOEPHEDRINE HYDROCHLORIDE
  6. OPSUMIT [Suspect]
     Active Substance: MACITENTAN
     Indication: PULMONARY ARTERIAL HYPERTENSION
     Dosage: 10 MG, QD
     Route: 048
     Dates: start: 20200627
  7. HYDROXYCHLOROQUINE [Concomitant]
     Active Substance: HYDROXYCHLOROQUINE
  8. MULTIVITAMIN AND MINERAL [Concomitant]
     Active Substance: MINERALS\VITAMINS
  9. GABAPENTIN. [Concomitant]
     Active Substance: GABAPENTIN
  10. SILDENAFIL. [Concomitant]
     Active Substance: SILDENAFIL
  11. LISINOPRIL. [Concomitant]
     Active Substance: LISINOPRIL
  12. VITAMIN B COMPLEX [Concomitant]
     Active Substance: CYANOCOBALAMIN\DEXPANTHENOL\NIACINAMIDE\PYRIDOXINE HYDROCHLORIDE\RIBOFLAVIN 5^-PHOSPHATE SODIUM\THIAMINE HYDROCHLORIDE\VITAMIN B COMPLEX
  13. MIDODRINE [Concomitant]
     Active Substance: MIDODRINE
  14. LEVOTHYROXINE. [Concomitant]
     Active Substance: LEVOTHYROXINE
  15. FUROSEMIDE. [Concomitant]
     Active Substance: FUROSEMIDE
  16. TORSEMIDE. [Concomitant]
     Active Substance: TORSEMIDE
  17. NORCO [Concomitant]
     Active Substance: ACETAMINOPHEN\HYDROCODONE BITARTRATE
  18. SODIUM CHLORIDE. [Concomitant]
     Active Substance: SODIUM CHLORIDE
  19. SPIRONOLACTONE. [Concomitant]
     Active Substance: SPIRONOLACTONE
  20. COUMADIN [Concomitant]
     Active Substance: WARFARIN SODIUM
  21. METOPROLOL. [Concomitant]
     Active Substance: METOPROLOL

REACTIONS (15)
  - International normalised ratio increased [Not Recovered/Not Resolved]
  - Acute respiratory failure [Unknown]
  - Cardiac failure congestive [Unknown]
  - Fall [Unknown]
  - Pneumonia [Unknown]
  - Hyperkalaemia [Recovering/Resolving]
  - Dyspnoea [Unknown]
  - Acute kidney injury [Unknown]
  - Hyponatraemia [Recovering/Resolving]
  - Cardiac arrest [Fatal]
  - Balance disorder [Not Recovered/Not Resolved]
  - Feeling abnormal [Not Recovered/Not Resolved]
  - Disorientation [Not Recovered/Not Resolved]
  - Arthralgia [Unknown]
  - Blood loss anaemia [Unknown]

NARRATIVE: CASE EVENT DATE: 20200628
